FAERS Safety Report 5430792-4 (Version None)
Quarter: 2007Q3

REPORT INFORMATION
  Report Type: 
  Country: None (occurrence: None)
  Receive Date: 20070830
  Receipt Date: 20061122
  Transmission Date: 20080115
  Serious: No
  Sender: FDA-Public Use
  Company Number: A0628465A

PATIENT
  Age: 39 Year
  Sex: Male

DRUGS (3)
  1. WELLBUTRIN XR [Suspect]
     Indication: SLEEP DISORDER
     Dosage: 150MG PER DAY
     Route: 048
     Dates: start: 20061117
  2. ZOCOR [Concomitant]
  3. ACIPHEX [Concomitant]

REACTIONS (1)
  - HYPERHIDROSIS [None]
